FAERS Safety Report 4565616-0 (Version None)
Quarter: 2005Q1

REPORT INFORMATION
  Report Type: 
  Country: None (occurrence: None)
  Receive Date: 20050125
  Receipt Date: 20050125
  Transmission Date: 20050727
  Serious: Yes (Hospitalization)
  Sender: FDA-Public Use
  Company Number: None

PATIENT
  Age: 77 Year
  Sex: Male
  Weight: 83.2 kg

DRUGS (14)
  1. AMIODARONE HCL [Suspect]
     Indication: ATRIAL FIBRILLATION
     Dosage: 200MG QD ORAL
     Route: 048
     Dates: start: 20040418
  2. AMIODARONE HCL [Suspect]
     Indication: CARDIAC FAILURE CONGESTIVE
     Dosage: 200MG QD ORAL
     Route: 048
     Dates: start: 20040418
  3. METOPROLOL [Suspect]
     Dosage: 15 MG QD ORAL
     Route: 048
  4. DIGOXIN [Suspect]
     Dosage: 200MG QD ORAL
     Route: 048
  5. MULTI-VITAMIN [Concomitant]
  6. SIMVASTATIN [Concomitant]
  7. PRAMIPEXOLE DIHYDROCHLORIDE [Concomitant]
  8. COUMADIN [Concomitant]
  9. OMEPRAZOLE [Concomitant]
  10. FUROSEMIDE [Concomitant]
  11. AMIODARONE HCL (GENEVA) [Concomitant]
  12. LANOXIN [Concomitant]
  13. METOPROLOL TARTRATE [Concomitant]
  14. ACETAMINOPHEN [Concomitant]

REACTIONS (2)
  - BRADYCARDIA [None]
  - HYPOTENSION [None]
